FAERS Safety Report 10547623 (Version 2)
Quarter: 2015Q1

REPORT INFORMATION
  Report Type: Spontaneous
  Country: JP (occurrence: JP)
  Receive Date: 20141028
  Receipt Date: 20150102
  Transmission Date: 20150720
  Serious: Yes (Other)
  Sender: FDA-Public Use
  Company Number: JP-BEH-2014041977

PATIENT
  Age: 66 Year
  Sex: Male
  Weight: 37 kg

DRUGS (2)
  1. ALBUMINAR [Suspect]
     Active Substance: ALBUMIN (HUMAN)
     Indication: MYASTHENIA GRAVIS
     Route: 042
     Dates: start: 20140324, end: 20140324
  2. ALBUMINAR [Suspect]
     Active Substance: ALBUMIN (HUMAN)
     Indication: MYASTHENIA GRAVIS
     Route: 042
     Dates: start: 20140324, end: 20140324

REACTIONS (14)
  - Rash papular [Recovered/Resolved]
  - Oedema peripheral [Recovered/Resolved]
  - Pruritus [Recovered/Resolved]
  - Peripheral swelling [Recovered/Resolved]
  - Hypotension [Recovered/Resolved]
  - Hypersensitivity [Recovered/Resolved]
  - Blood pressure systolic abnormal [Recovered/Resolved]
  - Drug eruption [Recovered/Resolved]
  - Flushing [Recovered/Resolved]
  - Anaphylactic reaction [Recovered/Resolved]
  - Urticaria [Recovered/Resolved]
  - Musculoskeletal stiffness [Recovered/Resolved]
  - Erythema [Recovered/Resolved]
  - Haemorrhage [Recovered/Resolved]

NARRATIVE: CASE EVENT DATE: 20140324
